FAERS Safety Report 18394636 (Version 2)
Quarter: 2021Q2

REPORT INFORMATION
  Report Type: Report from Study
  Country: FR (occurrence: FR)
  Receive Date: 20201016
  Receipt Date: 20210507
  Transmission Date: 20210717
  Serious: Yes (Hospitalization)
  Sender: FDA-Public Use
  Company Number: PHHO2016FR003081

PATIENT
  Age: 65 Year
  Sex: Female
  Weight: 79 kg

DRUGS (15)
  1. LEE011 [Suspect]
     Active Substance: RIBOCICLIB
     Indication: MALIGNANT MELANOMA
     Dosage: 400 MG, QD (21/28 DAYS)
     Route: 065
     Dates: start: 20150606, end: 20160113
  2. LGX818 [Suspect]
     Active Substance: ENCORAFENIB
     Indication: MALIGNANT MELANOMA
     Dosage: 100 MG, QD
     Route: 048
     Dates: start: 20150606, end: 20160120
  3. BINIMETINIB [Suspect]
     Active Substance: BINIMETINIB
     Dosage: 30 MG, BID
     Route: 065
     Dates: start: 20160217
  4. LEE011 [Suspect]
     Active Substance: RIBOCICLIB
     Dosage: UNK
     Route: 065
     Dates: start: 20160217
  5. BIOCALYPTOL [Concomitant]
     Indication: PRODUCT USED FOR UNKNOWN INDICATION
     Dosage: UNK
     Route: 065
     Dates: start: 20151127
  6. LGX818 [Suspect]
     Active Substance: ENCORAFENIB
     Dosage: UNK
     Route: 065
     Dates: start: 20160217
  7. LEVOTHYROX [Concomitant]
     Active Substance: LEVOTHYROXINE
     Indication: PRODUCT USED FOR UNKNOWN INDICATION
     Dosage: UNK
     Route: 065
     Dates: start: 20120909
  8. PEVARYL [Concomitant]
     Active Substance: ECONAZOLE NITRATE
     Indication: PRODUCT USED FOR UNKNOWN INDICATION
     Dosage: UNK
     Route: 065
     Dates: start: 20150125
  9. HYDROCORTISONE. [Concomitant]
     Active Substance: HYDROCORTISONE
     Indication: PRODUCT USED FOR UNKNOWN INDICATION
     Dosage: UNK
     Route: 065
     Dates: start: 20120712
  10. LOPRIL [Concomitant]
     Active Substance: LISINOPRIL
     Indication: PRODUCT USED FOR UNKNOWN INDICATION
     Dosage: UNK
     Route: 065
     Dates: start: 20150914
  11. LEE011 [Suspect]
     Active Substance: RIBOCICLIB
     Dosage: 400 MG, QD (21/28 DAYS)
     Route: 048
     Dates: start: 20160121, end: 20160210
  12. BINIMETINIB [Suspect]
     Active Substance: BINIMETINIB
     Dosage: 30 MG, BID
     Route: 048
     Dates: start: 20160121, end: 20160210
  13. LGX818 [Suspect]
     Active Substance: ENCORAFENIB
     Dosage: 100 MG, QD
     Route: 048
     Dates: start: 20160121, end: 20160210
  14. BINIMETINIB [Suspect]
     Active Substance: BINIMETINIB
     Indication: MALIGNANT MELANOMA
     Dosage: 30 MG, BID
     Route: 048
     Dates: start: 20150606, end: 20160120
  15. MOPRAL [Concomitant]
     Active Substance: OMEPRAZOLE
     Indication: PRODUCT USED FOR UNKNOWN INDICATION
     Dosage: UNK
     Route: 065
     Dates: start: 20151127

REACTIONS (1)
  - Renal failure [Recovered/Resolved]

NARRATIVE: CASE EVENT DATE: 20160216
